FAERS Safety Report 7291734-2 (Version None)
Quarter: 2011Q1

REPORT INFORMATION
  Report Type: 
  Country: None (occurrence: None)
  Receive Date: 20110214
  Receipt Date: 20110203
  Transmission Date: 20110831
  Serious: Yes (Other)
  Sender: FDA-Public Use
  Company Number: US-TEVA-266787USA

PATIENT

DRUGS (1)
  1. LANSOPRAZOLE DELAYED-RELEASE ORALLY DISINTEGRATING TABLETS, 15MG AND 3 [Suspect]

REACTIONS (2)
  - DEVICE OCCLUSION [None]
  - THERAPEUTIC RESPONSE UNEXPECTED WITH DRUG SUBSTITUTION [None]
